FAERS Safety Report 13174324 (Version 2)
Quarter: 2017Q2

REPORT INFORMATION
  Report Type: Spontaneous
  Country: US (occurrence: US)
  Receive Date: 20170131
  Receipt Date: 20170503
  Transmission Date: 20170830
  Serious: No
  Sender: FDA-Public Use
  Company Number: US-AMGEN-USASP2016165064

PATIENT
  Sex: Male

DRUGS (1)
  1. IMLYGIC [Suspect]
     Active Substance: TALIMOGENE LAHERPAREPVEC
     Indication: SKIN LESION
     Dosage: UNK
     Route: 065

REACTIONS (5)
  - Injection site pain [Recovered/Resolved]
  - Condition aggravated [Recovering/Resolving]
  - Nausea [Unknown]
  - Pain [Unknown]
  - Hair colour changes [Unknown]
